FAERS Safety Report 7548762-9 (Version None)
Quarter: 2011Q2

REPORT INFORMATION
  Report Type: 
  Country: None (occurrence: None)
  Receive Date: 20110615
  Receipt Date: 20110531
  Transmission Date: 20111010
  Serious: Yes (Disabling)
  Sender: FDA-Public Use
  Company Number: US-ELI_LILLY_AND_COMPANY-US201102004014

PATIENT

DRUGS (2)
  1. ANTIDEPRESSANTS [Concomitant]
  2. CYMBALTA [Suspect]
     Dosage: 60 MG, UNKNOWN

REACTIONS (1)
  - NECK PAIN [None]
